FAERS Safety Report 6576824-1 (Version None)
Quarter: 2010Q1

REPORT INFORMATION
  Report Type: 
  Country: None (occurrence: None)
  Receive Date: 20100210
  Receipt Date: 20100202
  Transmission Date: 20100710
  Serious: Yes (Other)
  Sender: FDA-Public Use
  Company Number: US-ELI_LILLY_AND_COMPANY-US200910004761

PATIENT
  Age: 31 Year
  Sex: Female

DRUGS (6)
  1. CYMBALTA [Suspect]
     Indication: DEPRESSION
     Dosage: 120 MG, UNK
     Route: 048
     Dates: start: 20090826
  2. AMBIEN [Concomitant]
     Dosage: UNK, EACH EVENING
  3. GABAPENTIN [Concomitant]
     Dosage: 900 MG, 3/D
  4. MORPHINE SULFATE [Concomitant]
  5. ZANAFLEX [Concomitant]
  6. IBUPROFEN [Concomitant]

REACTIONS (2)
  - LUNG NEOPLASM [None]
  - THYROID CYST [None]
